FAERS Safety Report 23656499 (Version 1)
Quarter: 2024Q1

REPORT INFORMATION
  Report Type: Spontaneous
  Country: US (occurrence: US)
  Receive Date: 20240321
  Receipt Date: 20240321
  Transmission Date: 20240410
  Serious: Yes (Hospitalization, Other)
  Sender: FDA-Public Use
  Company Number: US-MLMSERVICE-20240301-4853147-1

PATIENT
  Age: 65 Year
  Sex: Male

DRUGS (8)
  1. POSACONAZOLE [Interacting]
     Active Substance: POSACONAZOLE
     Indication: Soft tissue infection
     Dosage: UNK(LOADING DOSE)
     Route: 065
  2. POSACONAZOLE [Interacting]
     Active Substance: POSACONAZOLE
     Indication: Skin infection
     Dosage: 300 MILLIGRAM, ONCE A DAY (PLANNED COURSE OF 3?6 MONTHS)
     Route: 048
  3. POSACONAZOLE [Interacting]
     Active Substance: POSACONAZOLE
     Indication: Fungal infection
     Dosage: 300 MILLIGRAM, TWO TIMES A DAY (PLANNED COURSE OF 3?6 MONTHS)
     Route: 048
  4. TACROLIMUS [Interacting]
     Active Substance: TACROLIMUS
     Indication: Immunosuppressant drug therapy
     Dosage: UNK
     Route: 065
  5. MYCOPHENOLIC ACID [Concomitant]
     Active Substance: MYCOPHENOLIC ACID
     Indication: Immunosuppressant drug therapy
     Dosage: UNK
     Route: 065
  6. AMPICILLIN SODIUM\SULBACTAM SODIUM [Concomitant]
     Active Substance: AMPICILLIN SODIUM\SULBACTAM SODIUM
     Indication: Evidence based treatment
     Dosage: UNK
     Route: 065
  7. PREDNISONE [Concomitant]
     Active Substance: PREDNISONE
     Indication: Immunosuppressant drug therapy
     Dosage: UNK
     Route: 065
  8. SULFAMETHOXAZOLE AND TRIMETHOPRIM [Concomitant]
     Active Substance: SULFAMETHOXAZOLE\TRIMETHOPRIM
     Indication: Prophylaxis
     Dosage: UNK
     Route: 065

REACTIONS (5)
  - Acute kidney injury [Unknown]
  - Immunosuppressant drug level increased [Unknown]
  - Drug interaction [Unknown]
  - Toxicity to various agents [Unknown]
  - Inappropriate schedule of product administration [Unknown]
